FAERS Safety Report 8008415-X (Version None)
Quarter: 2011Q4

REPORT INFORMATION
  Report Type: 
  Country: None (occurrence: None)
  Receive Date: 20111227
  Receipt Date: 20111220
  Transmission Date: 20120403
  Serious: Yes (Hospitalization)
  Sender: FDA-Public Use
  Company Number: SE-ROCHE-1016112

PATIENT
  Sex: Female
  Weight: 98 kg

DRUGS (14)
  1. CARBOPLATIN [Suspect]
     Indication: PRODUCT USED FOR UNKNOWN INDICATION
     Dosage: DATE OF LAST DOSE PRIOR TO SAE: 01/NOV/2011
     Route: 042
     Dates: start: 20111101
  2. ACETAMINOPHEN [Concomitant]
  3. AVASTIN [Suspect]
     Indication: PRODUCT USED FOR UNKNOWN INDICATION
     Dosage: DATE OF LAST DOSE PRIOR TO SAE: 01/NOV/2011
     Route: 042
     Dates: start: 20111101
  4. PACLITAXEL [Suspect]
     Indication: PRODUCT USED FOR UNKNOWN INDICATION
     Route: 042
     Dates: start: 20111101, end: 20111115
  5. PACLITAXEL [Suspect]
     Route: 042
     Dates: start: 20111206
  6. TRAMADOL HCL [Concomitant]
  7. AVASTIN [Suspect]
     Route: 042
     Dates: start: 20111206
  8. ENALAPRIL MALEATE [Concomitant]
     Dates: start: 20110925, end: 20111126
  9. OMEPRAZOLE [Concomitant]
     Dates: start: 20111005
  10. FRAGMIN [Concomitant]
     Dosage: 5000
  11. ANDOLEX [Concomitant]
     Dates: start: 20111108
  12. LASIX [Concomitant]
     Dates: start: 20111031
  13. LAXOBERAL [Concomitant]
     Dates: start: 20111108
  14. PRIMPERAN (SWEDEN) [Concomitant]
     Dates: start: 20111101

REACTIONS (2)
  - BLOOD CREATININE INCREASED [None]
  - FATIGUE [None]
